FAERS Safety Report 6050311-1 (Version None)
Quarter: 2009Q1

REPORT INFORMATION
  Report Type: 
  Country: None (occurrence: None)
  Receive Date: 20090126
  Receipt Date: 20090112
  Transmission Date: 20090719
  Serious: Yes (Death, Other)
  Sender: FDA-Public Use
  Company Number: US-ROCHE-608465

PATIENT
  Age: 59 Year
  Sex: Female

DRUGS (14)
  1. CLONAZEPAM [Suspect]
     Indication: DRUG USE FOR UNKNOWN INDICATION
     Dosage: ROUTE REPORTED AS INGESTION
     Route: 048
  2. CLONAZEPAM [Suspect]
     Route: 048
  3. ACETAMINOPHEN [Suspect]
     Indication: DRUG USE FOR UNKNOWN INDICATION
     Dosage: ROUTE REPORTED AS  INGESTION; DRUG REPORTED AS ACETAMINOPHEN/HYDROCODONE, DOSE: 5/500 MG
     Route: 048
  4. ACETAMINOPHEN [Suspect]
     Route: 048
  5. RISPERDAL [Suspect]
     Indication: DRUG USE FOR UNKNOWN INDICATION
     Dosage: ROUTE REPORTED AS INGESTION
     Route: 048
  6. RISPERDAL [Suspect]
     Route: 048
  7. TRAZODONE HCL [Suspect]
     Indication: DRUG USE FOR UNKNOWN INDICATION
     Dosage: ROUTE REPORTED AS INGESTION
     Route: 048
  8. TRAZODONE HCL [Suspect]
     Route: 048
  9. ATENOLOL [Suspect]
     Indication: DRUG USE FOR UNKNOWN INDICATION
     Dosage: ROUTE: INGESTION
     Route: 048
  10. ATENOLOL [Suspect]
     Route: 048
  11. ZIPRASIDONE [Suspect]
     Indication: DRUG USE FOR UNKNOWN INDICATION
     Dosage: ROUTE REPORTED AS INGESTION
     Route: 048
  12. ZIPRASIDONE [Suspect]
     Route: 048
  13. SERTRALINE [Suspect]
     Indication: DRUG USE FOR UNKNOWN INDICATION
     Dosage: ROUTE REPORTED AS INGESTION
     Route: 048
  14. SERTRALINE [Suspect]
     Route: 048

REACTIONS (6)
  - ACUTE RESPIRATORY DISTRESS SYNDROME [None]
  - APNOEA [None]
  - COMPLETED SUICIDE [None]
  - DISSEMINATED INTRAVASCULAR COAGULATION [None]
  - LETHARGY [None]
  - MULTIPLE DRUG OVERDOSE [None]
